FAERS Safety Report 17437379 (Version 1)
Quarter: 2020Q1

REPORT INFORMATION
  Report Type: Spontaneous
  Country: AU (occurrence: AU)
  Receive Date: 20200219
  Receipt Date: 20200219
  Transmission Date: 20200409
  Serious: Yes (Hospitalization, Other)
  Sender: FDA-Public Use
  Company Number: AU-REGENERON PHARMACEUTICALS, INC.-2020-20131

PATIENT

DRUGS (1)
  1. EYLEA [Suspect]
     Active Substance: AFLIBERCEPT
     Indication: PRODUCT USED FOR UNKNOWN INDICATION
     Dosage: UNKNOWN TOTAL INJECTIONS RECEIVED
     Route: 031
     Dates: start: 20200110

REACTIONS (4)
  - Glaucoma [Unknown]
  - Traumatic fracture [Unknown]
  - Dementia [Unknown]
  - Fall [Unknown]
